FAERS Safety Report 16628938 (Version 1)
Quarter: 2019Q3

REPORT INFORMATION
  Report Type: Spontaneous
  Country: CA (occurrence: CA)
  Receive Date: 20190725
  Receipt Date: 20190725
  Transmission Date: 20191004
  Serious: Yes (Other)
  Sender: FDA-Public Use
  Company Number: CA-IGSA-SR10008825

PATIENT
  Age: 10 Month
  Sex: Female

DRUGS (1)
  1. GAMASTAN S/D [Suspect]
     Active Substance: HUMAN IMMUNOGLOBULIN A\HUMAN IMMUNOGLOBULIN G
     Indication: PRODUCT USED FOR UNKNOWN INDICATION
     Dosage: 1.9 ML, SINGLE
     Route: 030

REACTIONS (12)
  - Oculogyric crisis [Recovered/Resolved]
  - Rhinorrhoea [Recovered/Resolved]
  - Vomiting [Recovered/Resolved]
  - Cold sweat [Recovered/Resolved]
  - Cyanosis [Recovered/Resolved]
  - Pallor [Recovered/Resolved]
  - Agitation [Recovered/Resolved]
  - Hypotonic-hyporesponsive episode [Recovered/Resolved]
  - Chills [Recovered/Resolved]
  - Lip erythema [Recovered/Resolved]
  - Unresponsive to stimuli [Recovered/Resolved]
  - Angioedema [Recovered/Resolved]
